FAERS Safety Report 16420553 (Version 2)
Quarter: 2020Q2

REPORT INFORMATION
  Report Type: Spontaneous
  Country: US (occurrence: US)
  Receive Date: 20190612
  Receipt Date: 20200518
  Transmission Date: 20200713
  Serious: Yes (Other)
  Sender: FDA-Public Use
  Company Number: US-RECKITT BENCKISER HEALTHCARE INT LIMITED-RB-86387-2019

PATIENT
  Age: 32 Year
  Sex: Male

DRUGS (1)
  1. DEXTROMETHORPHAN [Suspect]
     Active Substance: DEXTROMETHORPHAN
     Indication: DRUG ABUSE
     Dosage: UNK
     Route: 048

REACTIONS (9)
  - Depression [Unknown]
  - Serotonin syndrome [Unknown]
  - Psychotic disorder [Unknown]
  - Physical assault [Unknown]
  - Antisocial personality disorder [Unknown]
  - Overdose [Unknown]
  - Hyperchloraemia [Unknown]
  - Toxicity to various agents [Unknown]
  - Drug abuse [Unknown]
